FAERS Safety Report 5201347-1 (Version None)
Quarter: 2006Q4

REPORT INFORMATION
  Report Type: 
  Country: None (occurrence: None)
  Receive Date: 20061016
  Receipt Date: 20020226
  Transmission Date: 20070319
  Serious: Yes (Disabling)
  Sender: FDA-Public Use
  Company Number: PHEH2002US01481

PATIENT
  Sex: Female
  Weight: 35.4 kg

DRUGS (1)
  1. MIACALCIN [Suspect]
     Indication: OSTEOPOROSIS
     Dosage: 1 SPRAY DAILY, INTRANASAL

REACTIONS (1)
  - DIZZINESS [None]
